FAERS Safety Report 6752508-1 (Version None)
Quarter: 2010Q2

REPORT INFORMATION
  Report Type: 
  Country: None (occurrence: None)
  Receive Date: 20100601
  Receipt Date: 20100601
  Transmission Date: 20101027
  Serious: No
  Sender: FDA-Public Use
  Company Number: None

PATIENT
  Age: 87 Year
  Sex: Male
  Weight: 77.1115 kg

DRUGS (1)
  1. ENABLEX [Suspect]
     Indication: BLADDER DISORDER
     Dosage: ONE TABLET DAILY
     Dates: start: 20100503, end: 20100528

REACTIONS (2)
  - CONSTIPATION [None]
  - URINARY TRACT INFECTION [None]
